FAERS Safety Report 16962175 (Version 2)
Quarter: 2020Q1

REPORT INFORMATION
  Report Type: Spontaneous
  Country: US (occurrence: US)
  Receive Date: 20191025
  Receipt Date: 20200106
  Transmission Date: 20200409
  Serious: No
  Sender: FDA-Public Use
  Company Number: US-JNJFOC-20191023118

PATIENT
  Age: 47 Year
  Sex: Female
  Weight: 88.98 kg

DRUGS (2)
  1. SPRAVATO [Suspect]
     Active Substance: ESKETAMINE
     Indication: DEPRESSION
     Dosage: FOR FIRST 4 WEEKS
     Dates: start: 20190814
  2. TRINTELLIX [Concomitant]
     Active Substance: VORTIOXETINE HYDROBROMIDE
     Dates: start: 20191008

REACTIONS (1)
  - Epistaxis [Recovered/Resolved]

NARRATIVE: CASE EVENT DATE: 20191010
